FAERS Safety Report 9820093 (Version 1)
Quarter: 2014Q1

REPORT INFORMATION
  Report Type: Spontaneous
  Country: US (occurrence: None)
  Receive Date: 20140113
  Receipt Date: 20140113
  Transmission Date: 20141002
  Serious: Yes (Other)
  Sender: FDA-Public Use
  Company Number: None

PATIENT
  Age: 74 Year
  Sex: Male
  Weight: 76.66 kg

DRUGS (1)
  1. VIAGRA [Suspect]
     Dosage: A1 AS NEEDED
     Route: 048

REACTIONS (3)
  - Cough [None]
  - Dysphagia [None]
  - Pharyngeal disorder [None]
